FAERS Safety Report 6545099-1 (Version None)
Quarter: 2010Q1

REPORT INFORMATION
  Report Type: 
  Country: None (occurrence: None)
  Receive Date: 20100121
  Receipt Date: 20100118
  Transmission Date: 20100710
  Serious: Yes (Life-Threatening)
  Sender: FDA-Public Use
  Company Number: IT-SANOFI-AVENTIS-2010SA002849

PATIENT
  Age: 65 Year
  Sex: Male

DRUGS (9)
  1. ELOXATIN [Suspect]
     Route: 042
     Dates: start: 20100107, end: 20100107
  2. ELOXATIN [Suspect]
     Route: 042
     Dates: start: 20091116, end: 20091116
  3. XELODA [Concomitant]
     Route: 048
     Dates: start: 20100112, end: 20100112
  4. XELODA [Concomitant]
     Route: 048
     Dates: start: 20091116, end: 20091116
  5. ATENOLOL [Concomitant]
     Indication: DRUG USE FOR UNKNOWN INDICATION
     Route: 065
  6. HYDROCHLOROTHIAZIDE [Concomitant]
     Indication: DRUG USE FOR UNKNOWN INDICATION
     Route: 065
  7. AMLODIPINE [Concomitant]
     Indication: DRUG USE FOR UNKNOWN INDICATION
     Route: 065
  8. DEXAMETHASONE SODIUM PHOSPHATE [Concomitant]
     Indication: DRUG USE FOR UNKNOWN INDICATION
     Route: 065
     Dates: start: 20100107, end: 20100107
  9. DEXAMETHASONE SODIUM PHOSPHATE [Concomitant]
     Route: 065
     Dates: start: 20100108, end: 20100110

REACTIONS (5)
  - DISORIENTATION [None]
  - DYSARTHRIA [None]
  - ENCEPHALITIS [None]
  - FACIAL PARESIS [None]
  - GAIT DISTURBANCE [None]
